FAERS Safety Report 5796712-8 (Version None)
Quarter: 2008Q2

REPORT INFORMATION
  Report Type: 
  Country: None (occurrence: None)
  Receive Date: 20080627
  Receipt Date: 20080616
  Transmission Date: 20081010
  Serious: Yes (Hospitalization)
  Sender: FDA-Public Use
  Company Number: IDR-00139

PATIENT
  Age: 21 Year
  Sex: Male

DRUGS (1)
  1. INDERAL LA [Suspect]
     Indication: FAMILIAL TREMOR
     Dosage: 60 MG QD PO
     Route: 048
     Dates: start: 20070501, end: 20080101

REACTIONS (10)
  - AMNESIA [None]
  - ANAPHYLACTIC REACTION [None]
  - CARDIAC DISORDER [None]
  - CHEST PAIN [None]
  - DISTURBANCE IN ATTENTION [None]
  - DYSPNOEA [None]
  - LOSS OF CONSCIOUSNESS [None]
  - MENTAL IMPAIRMENT [None]
  - ORAL INTAKE REDUCED [None]
  - PERFORMANCE STATUS DECREASED [None]
